FAERS Safety Report 10440766 (Version 6)
Quarter: 2014Q4

REPORT INFORMATION
  Report Type: Spontaneous
  Country: JP (occurrence: JP)
  Receive Date: 20140909
  Receipt Date: 20141230
  Transmission Date: 20150528
  Serious: Yes (Disabling, Other)
  Sender: FDA-Public Use
  Company Number: JP-009507513-1409JPN002104

PATIENT
  Age: 72 Year
  Sex: Male

DRUGS (7)
  1. JANUVIA [Suspect]
     Active Substance: SITAGLIPTIN PHOSPHATE
     Indication: DIABETES MELLITUS
     Dosage: 50 MG, QD
     Route: 048
     Dates: start: 20140729, end: 20140819
  2. DIOVAN [Concomitant]
     Active Substance: VALSARTAN
     Indication: HYPERTENSION
     Dosage: 40 MG, BID; FORMULATION: POR
     Route: 048
     Dates: start: 2001
  3. ALIMAN [Concomitant]
     Indication: URTICARIA
     Dosage: 3 MG, TID
     Route: 048
     Dates: start: 2008
  4. VITANEURIN (FURSULTIAMINE HYDROCHLORIDE (+) HYDROXOCOBALAMIN ACETATE ( [Concomitant]
     Indication: ECZEMA
     Dosage: 50 MG, QD
     Route: 048
     Dates: start: 2008
  5. PANTOSIN [Concomitant]
     Active Substance: PANTETHINE
     Indication: HYPERLIPIDAEMIA
     Dosage: 200 MG, TID
     Route: 048
     Dates: start: 20140617
  6. PANTOSIN [Concomitant]
     Active Substance: PANTETHINE
     Indication: BLOOD GLUCOSE ABNORMAL
  7. CINAL [Concomitant]
     Active Substance: ASCORBIC ACID\CALCIUM PANTOTHENATE
     Indication: ECZEMA
     Dosage: 1 G, QD
     Route: 048
     Dates: start: 2008

REACTIONS (8)
  - Gait disturbance [Recovered/Resolved]
  - Walking aid user [Recovered/Resolved]
  - Hypoaesthesia [Recovered/Resolved]
  - Dysstasia [Recovered/Resolved]
  - Gait disturbance [Recovered/Resolved]
  - Mobility decreased [Recovered/Resolved]
  - Rhabdomyolysis [Recovered/Resolved]
  - Gait disturbance [Recovered/Resolved]

NARRATIVE: CASE EVENT DATE: 2014
